FAERS Safety Report 9590353 (Version 1)
Quarter: 2013Q4

REPORT INFORMATION
  Report Type: Spontaneous
  Country: US (occurrence: US)
  Receive Date: 20131003
  Receipt Date: 20131003
  Transmission Date: 20140711
  Serious: No
  Sender: FDA-Public Use
  Company Number: US-AMGEN-USASP2012077037

PATIENT
  Sex: Male
  Weight: 88.44 kg

DRUGS (9)
  1. ENBREL [Suspect]
     Indication: RHEUMATOID ARTHRITIS
     Dosage: 50 MG, QWK
     Route: 058
  2. HUMIRA [Concomitant]
     Dosage: 40 MG/0.8, UNK
  3. AVALIDE [Concomitant]
     Dosage: 300-12.5, UNK
  4. PRAVASTATIN [Concomitant]
     Dosage: 10 MG, UNK
  5. PROPRANOLOL [Concomitant]
     Dosage: 60 MG, ER
  6. PREDNISONE [Concomitant]
     Dosage: 5 MG, UNK
  7. LANSOPRAZOLE [Concomitant]
     Dosage: 30 MG, DR
  8. BABY ASPIRIN [Concomitant]
     Dosage: 81 MG, UNK
  9. VALACYCLOVIR HCL PHARMA PAC [Concomitant]
     Dosage: 500 MG, UNK

REACTIONS (5)
  - Groin pain [Unknown]
  - Pain in extremity [Unknown]
  - Testicular pain [Unknown]
  - Nausea [Unknown]
  - Disorientation [Unknown]
